FAERS Safety Report 6339625-5 (Version None)
Quarter: 2009Q3

REPORT INFORMATION
  Report Type: 
  Country: None (occurrence: None)
  Receive Date: 20090903
  Receipt Date: 20090827
  Transmission Date: 20100115
  Serious: Yes (Other)
  Sender: FDA-Public Use
  Company Number: JP-MERCK-0909USA00089

PATIENT
  Age: 70 Year
  Sex: Female

DRUGS (4)
  1. PEPCID RPD [Suspect]
     Route: 048
  2. MINODRONIC ACID [Suspect]
     Route: 048
     Dates: start: 20090807, end: 20090827
  3. ONEALFA [Concomitant]
     Route: 048
  4. BENET [Concomitant]
     Route: 065
     Dates: end: 20090806

REACTIONS (1)
  - DERMATITIS EXFOLIATIVE [None]
